FAERS Safety Report 19416481 (Version 1)
Quarter: 2021Q2

REPORT INFORMATION
  Report Type: Spontaneous
  Country: FR (occurrence: FR)
  Receive Date: 20210614
  Receipt Date: 20210614
  Transmission Date: 20210717
  Serious: Yes (Life-Threatening, Other)
  Sender: FDA-Public Use
  Company Number: FR-PFIZER INC-2021668271

PATIENT
  Age: 61 Year
  Sex: Male

DRUGS (8)
  1. CORTANCYL [Suspect]
     Active Substance: PREDNISONE
     Indication: RHEUMATOID ARTHRITIS
     Dosage: 10 MG, 1X/DAY
     Route: 048
     Dates: start: 1997
  2. COMIRNATY [Suspect]
     Active Substance: TOZINAMERAN
     Indication: COVID-19 IMMUNISATION
     Dosage: 2ND DOSE, SINGLE DOSE
     Route: 030
     Dates: start: 20210506, end: 20210506
  3. VENTOLINE [SALBUTAMOL SULFATE] [Suspect]
     Active Substance: ALBUTEROL SULFATE
     Indication: ASTHMA
     Dosage: 2 DF, 1X/DAY
     Route: 055
     Dates: start: 1990
  4. SERETIDE [Suspect]
     Active Substance: FLUTICASONE PROPIONATE\SALMETEROL XINAFOATE
     Indication: ASTHMA
     Dosage: 2 G, 1X/DAY, (POWDER FOR INHALATION IN SINGLE?DOSE CONTAINER)
     Route: 055
  5. ATROVENT [Suspect]
     Active Substance: IPRATROPIUM BROMIDE
     Indication: ASTHMA
     Dosage: 3 DF, 1X/DAY, (SOLUTION FOR INHALATION BY NEBULIZER IN SINGLE?DOSE CONTAINER )
     Route: 055
  6. NOVATREX (METHOTREXATE) [Suspect]
     Active Substance: METHOTREXATE SODIUM
     Indication: RHEUMATOID ARTHRITIS
     Dosage: 6 DF, WEEKLY
     Route: 048
     Dates: start: 1997
  7. SPECIAFOLDINE [Suspect]
     Active Substance: FOLIC ACID
     Indication: VITAMIN SUPPLEMENTATION
     Dosage: 3 DF, WEEKLY
     Route: 048
     Dates: start: 1997
  8. OMEPRAZOLE. [Suspect]
     Active Substance: OMEPRAZOLE
     Dosage: 20 MG, 1X/DAY
     Route: 048
     Dates: start: 1996

REACTIONS (11)
  - Ischaemic stroke [Recovered/Resolved]
  - Abnormal precordial movement [Unknown]
  - Coronary artery stenosis [Unknown]
  - Troponin increased [Unknown]
  - Blood triglycerides increased [Unknown]
  - Blood cholesterol increased [Unknown]
  - High density lipoprotein increased [Unknown]
  - Thrombosis [Unknown]
  - Low density lipoprotein increased [Unknown]
  - Blood lactic acid increased [Unknown]
  - Acute myocardial infarction [Recovered/Resolved with Sequelae]

NARRATIVE: CASE EVENT DATE: 20210518
